FAERS Safety Report 25929616 (Version 1)
Quarter: 2025Q4

REPORT INFORMATION
  Report Type: Spontaneous
  Country: US (occurrence: None)
  Receive Date: 20251015
  Receipt Date: 20251015
  Transmission Date: 20260118
  Serious: Yes (Hospitalization)
  Sender: FDA-CTU
  Company Number: None

PATIENT
  Sex: Male

DRUGS (11)
  1. LENALIDOMIDE [Suspect]
     Active Substance: LENALIDOMIDE
     Indication: Plasma cell myeloma
     Dosage: OTHER QUANTITY : TAKE 1 CAPSULE;?FREQUENCY : DAILY;?
     Route: 048
     Dates: start: 20250801
  2. ACYCLOVIR [Concomitant]
     Active Substance: ACYCLOVIR
  3. ADVAIR DISKU AER [Concomitant]
  4. ALBUTEROL POW SULFATE [Concomitant]
  5. ALPRAZOLAM [Concomitant]
     Active Substance: ALPRAZOLAM
  6. AMLODIPINE [Concomitant]
     Active Substance: AMLODIPINE BESYLATE
  7. CANNABIDIOL POW [Concomitant]
  8. CYANOCOBALAM CRY [Concomitant]
  9. CYCLOBENZAPRINE HYDROCHLORIDE [Concomitant]
     Active Substance: CYCLOBENZAPRINE HYDROCHLORIDE
  10. DAPSONE [Concomitant]
     Active Substance: DAPSONE
  11. DARZALEX  SOL [Concomitant]

REACTIONS (2)
  - Pneumonia [None]
  - Immune system disorder [None]
